FAERS Safety Report 17744544 (Version 1)
Quarter: 2020Q2

REPORT INFORMATION
  Report Type: Spontaneous
  Country: CA (occurrence: CA)
  Receive Date: 20200504
  Receipt Date: 20200504
  Transmission Date: 20200714
  Serious: Yes (Hospitalization, Other)
  Sender: FDA-Public Use
  Company Number: CA-AMGEN-CANSP2020069317

PATIENT

DRUGS (2)
  1. NEUPOGEN [Suspect]
     Active Substance: FILGRASTIM
     Indication: PROPHYLAXIS
     Dosage: UNK UNK, CYCLICAL (300 AND 480 MICROGRAM)
     Route: 065
  2. GRASTOFIL [Concomitant]
     Active Substance: FILGRASTIM
     Indication: PROPHYLAXIS
     Dosage: UNK UNK, CYCLICAL (300 AND 480 MICROGRAM)
     Route: 065

REACTIONS (5)
  - Neutrophil count increased [Unknown]
  - Arthralgia [Unknown]
  - Unevaluable event [Unknown]
  - Febrile neutropenia [Unknown]
  - Myalgia [Unknown]
